FAERS Safety Report 9653226 (Version 2)
Quarter: 2013Q4

REPORT INFORMATION
  Report Type: Spontaneous
  Country: ZA (occurrence: ZA)
  Receive Date: 20131029
  Receipt Date: 20131121
  Transmission Date: 20140711
  Serious: Yes (Hospitalization, Other)
  Sender: FDA-Public Use
  Company Number: ZA-PFIZER INC-2013308271

PATIENT
  Age: 44 Year
  Sex: Female

DRUGS (7)
  1. CELEBREX [Suspect]
     Indication: OSTEOARTHRITIS
     Dosage: 200 MG, 2X/DAY (BD)
     Route: 048
     Dates: end: 20120120
  2. ELTROXIN [Concomitant]
     Dosage: 0.5 MG, 1X/DAY (OD)
  3. CONCOR [Concomitant]
     Dosage: 2.5 MG, 1X/DAY (OD)
  4. VENLOR [Concomitant]
     Dosage: 75 MG, 1X/DAY (OD)
  5. WARFARIN [Concomitant]
     Dosage: 10 MG, 1X/DAY (OD)
  6. CRESTOR [Concomitant]
     Dosage: 20 MG, 1X/DAY (OD)
  7. EZETROL [Concomitant]
     Dosage: ONE TABLET 1X/DAY (OD)

REACTIONS (3)
  - Hypertensive crisis [Recovered/Resolved]
  - Eye haemorrhage [Recovered/Resolved]
  - Headache [Recovered/Resolved]
